FAERS Safety Report 9638356 (Version 2)
Quarter: 2013Q4

REPORT INFORMATION
  Report Type: Report from Study
  Country: AU (occurrence: AU)
  Receive Date: 20131022
  Receipt Date: 20131022
  Transmission Date: 20140711
  Serious: Yes (Hospitalization)
  Sender: FDA-Public Use
  Company Number: AU-UCBSA-014301

PATIENT
  Age: 29 Year
  Sex: Male
  Weight: 72.6 kg

DRUGS (9)
  1. CERTOLIZUMAB PEGOL [Suspect]
     Indication: CROHN^S DISEASE
     Route: 058
     Dates: start: 20090915
  2. 6-MERCAPTOPURINE [Concomitant]
     Indication: CROHN^S DISEASE
     Route: 048
     Dates: start: 200902, end: 20100222
  3. 6-MERCAPTOPURINE [Concomitant]
     Indication: CROHN^S DISEASE
     Route: 048
     Dates: start: 20100303, end: 20100530
  4. 6-MERCAPTOPURINE [Concomitant]
     Indication: CROHN^S DISEASE
     Route: 048
     Dates: start: 20100602
  5. ZOVIRAZ [Concomitant]
     Indication: ORAL HERPES
     Route: 061
     Dates: start: 1986
  6. LYSINE [Concomitant]
     Indication: ORAL HERPES
     Route: 048
     Dates: start: 1996
  7. PANADOL [Concomitant]
     Indication: PAIN
     Route: 048
     Dates: start: 1988
  8. CENTRUM [Concomitant]
     Indication: BLOOD IRON DECREASED
     Route: 048
     Dates: start: 2006
  9. SUNSCREEN [Concomitant]
     Indication: GENERAL PHYSICAL HEALTH DETERIORATION
     Route: 061
     Dates: start: 1986

REACTIONS (1)
  - Anal fistula [Recovered/Resolved with Sequelae]
